FAERS Safety Report 11716926 (Version 3)
Quarter: 2015Q4

REPORT INFORMATION
  Report Type: Spontaneous
  Country: US (occurrence: US)
  Receive Date: 20151104
  Receipt Date: 20151120
  Transmission Date: 20160304
  Serious: No
  Sender: FDA-Public Use
  Company Number: US-ELI_LILLY_AND_COMPANY-US201105008549

PATIENT
  Age: 83 Year
  Sex: Female

DRUGS (3)
  1. FORTEO [Suspect]
     Active Substance: TERIPARATIDE
     Dosage: 20 UG, QD
  2. FORTEO [Suspect]
     Active Substance: TERIPARATIDE
     Dosage: 20 UG, QD
  3. FORTEO [Suspect]
     Active Substance: TERIPARATIDE
     Indication: OSTEOPOROSIS
     Dosage: 20 UG, QD
     Dates: end: 20110523

REACTIONS (8)
  - Chronic obstructive pulmonary disease [Recovering/Resolving]
  - Nasopharyngitis [Not Recovered/Not Resolved]
  - Intentional product misuse [Recovered/Resolved]
  - Cough [Not Recovered/Not Resolved]
  - Underdose [Unknown]
  - Dyspnoea [Recovering/Resolving]
  - Drug dose omission [Unknown]
  - Drug dose omission [Unknown]

NARRATIVE: CASE EVENT DATE: 20110523
